FAERS Safety Report 5375399-2 (Version None)
Quarter: 2007Q2

REPORT INFORMATION
  Report Type: 
  Country: None (occurrence: None)
  Receive Date: 20070629
  Receipt Date: 20070619
  Transmission Date: 20071010
  Serious: Yes (Death, Hospitalization, Other)
  Sender: FDA-Public Use
  Company Number: GB-PFIZER INC-2007015248

PATIENT
  Age: 33 Year
  Sex: Female

DRUGS (1)
  1. SULFASALAZINE [Suspect]
     Indication: RHEUMATOID ARTHRITIS
     Route: 048

REACTIONS (9)
  - ACUTE HEPATIC FAILURE [None]
  - CARDIAC FAILURE [None]
  - DIARRHOEA [None]
  - DRUG RASH WITH EOSINOPHILIA AND SYSTEMIC SYMPTOMS [None]
  - EXFOLIATIVE RASH [None]
  - HEPATIC FAILURE [None]
  - HEPATOTOXICITY [None]
  - RENAL FAILURE [None]
  - RESPIRATORY FAILURE [None]
